FAERS Safety Report 7414379-X (Version None)
Quarter: 2011Q2

REPORT INFORMATION
  Report Type: 
  Country: None (occurrence: None)
  Receive Date: 20110411
  Receipt Date: 20110411
  Transmission Date: 20111010
  Serious: Yes (Hospitalization, Other)
  Sender: FDA-Public Use
  Company Number: None

PATIENT
  Sex: Male

DRUGS (1)
  1. LAMICTAL [Suspect]

REACTIONS (2)
  - TOXIC EPIDERMAL NECROLYSIS [None]
  - TOXICITY TO VARIOUS AGENTS [None]
